FAERS Safety Report 11891817 (Version 1)
Quarter: 2016Q1

REPORT INFORMATION
  Report Type: Spontaneous
  Country: None (occurrence: None)
  Receive Date: 20160105
  Receipt Date: 20160105
  Transmission Date: 20160526
  Serious: Yes (Other)
  Sender: FDA-Public Use
  Company Number: None

PATIENT
  Age: 20 Year
  Sex: Female
  Weight: 45.36 kg

DRUGS (2)
  1. LORYNA [Suspect]
     Active Substance: DROSPIRENONE\ETHINYL ESTRADIOL
     Indication: CONTRACEPTION
     Dosage: 1 PILL
     Route: 048
  2. LORYNA [Suspect]
     Active Substance: DROSPIRENONE\ETHINYL ESTRADIOL
     Indication: ACNE
     Dosage: 1 PILL
     Route: 048

REACTIONS (7)
  - Libido decreased [None]
  - Skin haemorrhage [None]
  - Fibroadenoma of breast [None]
  - Impaired healing [None]
  - Dry skin [None]
  - Cervical dysplasia [None]
  - Skin exfoliation [None]

NARRATIVE: CASE EVENT DATE: 20081008
